FAERS Safety Report 4355075-5 (Version None)
Quarter: 2004Q2

REPORT INFORMATION
  Report Type: 
  Country: None (occurrence: None)
  Receive Date: 20040504
  Receipt Date: 20040423
  Transmission Date: 20050107
  Serious: Yes (Hospitalization)
  Sender: FDA-Public Use
  Company Number: 04P-151-0258689-00

PATIENT
  Age: 63 Year
  Sex: Male

DRUGS (4)
  1. TRICOR [Suspect]
     Dosage: 200 MG, 1 IN 1 D, ORAL
     Route: 048
  2. GLIMEPIRIDE [Suspect]
     Dosage: 1 MG
     Dates: end: 20040405
  3. CARVEDILOL [Suspect]
     Dosage: 12.5 MG
  4. IRBESARTAN [Concomitant]

REACTIONS (4)
  - CONFUSIONAL STATE [None]
  - DRUG INTERACTION POTENTIATION [None]
  - HYPOGLYCAEMIA [None]
  - RENAL FAILURE [None]
